FAERS Safety Report 4277338-4 (Version None)
Quarter: 2004Q1

REPORT INFORMATION
  Report Type: 
  Country: None (occurrence: None)
  Receive Date: 20040121
  Receipt Date: 20040121
  Transmission Date: 20041129
  Serious: Yes (Hospitalization)
  Sender: FDA-Public Use
  Company Number: None

PATIENT
  Age: 81 Year
  Sex: Female

DRUGS (2)
  1. ATORVASTATIN   PARKE-DAVIS [Suspect]
     Indication: HYPERLIPIDAEMIA
     Dosage: 40MG  DAILY  ORAL
     Route: 048
     Dates: start: 20010101, end: 20030405
  2. GEMFIBROZIL [Suspect]
     Indication: HYPERLIPIDAEMIA
     Dosage: 600MG  BID  ORAL
     Route: 048
     Dates: start: 20010101, end: 20030405

REACTIONS (8)
  - ASTHENIA [None]
  - AZOTAEMIA [None]
  - CARDIAC FAILURE CONGESTIVE [None]
  - CARDIOMYOPATHY [None]
  - FATIGUE [None]
  - HEPATIC ENZYME INCREASED [None]
  - HYPERKALAEMIA [None]
  - URINARY TRACT INFECTION [None]
